FAERS Safety Report 5337330-5 (Version None)
Quarter: 2007Q2

REPORT INFORMATION
  Report Type: 
  Country: None (occurrence: None)
  Receive Date: 20070529
  Receipt Date: 20070511
  Transmission Date: 20071010
  Serious: Yes (Other)
  Sender: FDA-Public Use
  Company Number: US-SHR-US-2007-013217

PATIENT
  Age: 73 Year
  Sex: Male
  Weight: 86.2 kg

DRUGS (24)
  1. MAGNEVIST [Suspect]
     Dosage: 40 ML, 1 DOSE
     Route: 042
     Dates: start: 20030604, end: 20030604
  2. MAGNEVIST [Suspect]
     Dosage: 40 ML, 1 DOSE
     Route: 042
     Dates: start: 20041005, end: 20041005
  3. MAGNEVIST [Suspect]
     Dosage: 40 ML, 1 DOSE
     Route: 042
     Dates: start: 20050303, end: 20050303
  4. MAGNEVIST [Suspect]
     Dosage: 20 ML, 1 DOSE
     Route: 042
     Dates: start: 20050303, end: 20050303
  5. SYNTHROID [Concomitant]
     Indication: HYPOTHYROIDISM
  6. ALLOPURINOL [Concomitant]
     Indication: GOUT
  7. CAPTOPRIL [Concomitant]
  8. NSAID'S [Concomitant]
  9. VISIPAQUE                               /USA/ [Concomitant]
     Dates: start: 20050103
  10. LASIX [Concomitant]
  11. TOPROL-XL [Concomitant]
  12. DOXAZOSIN MESYLATE [Concomitant]
  13. LIPITOR [Concomitant]
  14. ARANESP [Concomitant]
     Dates: start: 20050308
  15. PLAVIX [Concomitant]
  16. BECONASE [Concomitant]
  17. COLACE [Concomitant]
  18. ATROVENT [Concomitant]
  19. ADVAIR DISKUS 100/50 [Concomitant]
  20. AMBIEN [Concomitant]
  21. CARDURA                                 /IRE/ [Concomitant]
  22. MECLIZINE [Concomitant]
  23. ROXICET [Concomitant]
  24. SENNA [Concomitant]

REACTIONS (1)
  - NEPHROGENIC FIBROSING DERMOPATHY [None]
